FAERS Safety Report 23920392 (Version 4)
Quarter: 2024Q3

REPORT INFORMATION
  Report Type: Report from Study
  Country: US (occurrence: US)
  Receive Date: 20240530
  Receipt Date: 20240708
  Transmission Date: 20241017
  Serious: Yes (Other)
  Sender: GILEAD
  Company Number: US-GILEAD-2024-0672612

PATIENT
  Age: 56 Year
  Sex: Male

DRUGS (6)
  1. SACITUZUMAB GOVITECAN-HZIY [Suspect]
     Active Substance: SACITUZUMAB GOVITECAN-HZIY
     Indication: Bladder cancer stage IV
     Dosage: 100 PERCENT
     Route: 042
     Dates: start: 202201
  2. SACITUZUMAB GOVITECAN-HZIY [Suspect]
     Active Substance: SACITUZUMAB GOVITECAN-HZIY
     Dosage: 75% OF TRODELVY; TWO WEEKS ON AND ONE WEEK OFF
     Route: 042
     Dates: start: 202301
  3. NEUPOGEN [Concomitant]
     Active Substance: FILGRASTIM
     Dosage: UNKNOWN
  4. MORPHINE [Concomitant]
     Active Substance: MORPHINE
     Dosage: UNKNOWN
  5. ADDERALL [Concomitant]
     Active Substance: AMPHETAMINE ASPARTATE\AMPHETAMINE SULFATE\DEXTROAMPHETAMINE SACCHARATE\DEXTROAMPHETAMINE SULFATE
     Indication: Attention deficit hyperactivity disorder
     Dosage: UNKNOWN
  6. CISPLATIN [Concomitant]
     Active Substance: CISPLATIN
     Indication: Gallbladder cancer metastatic
     Dosage: UNK

REACTIONS (12)
  - Disease progression [Not Recovered/Not Resolved]
  - Loss of consciousness [Not Recovered/Not Resolved]
  - Feeling abnormal [Unknown]
  - Muscular weakness [Not Recovered/Not Resolved]
  - Asthenia [Not Recovered/Not Resolved]
  - Quality of life decreased [Not Recovered/Not Resolved]
  - Ill-defined disorder [Not Recovered/Not Resolved]
  - Unevaluable event [Unknown]
  - Dyspnoea [Not Recovered/Not Resolved]
  - Tremor [Not Recovered/Not Resolved]
  - Malaise [Not Recovered/Not Resolved]
  - Nausea [Unknown]

NARRATIVE: CASE EVENT DATE: 20220101
